FAERS Safety Report 5428043-X (Version None)
Quarter: 2007Q3

REPORT INFORMATION
  Report Type: 
  Country: None (occurrence: None)
  Receive Date: 20070828
  Receipt Date: 20070821
  Transmission Date: 20080115
  Serious: Yes (Hospitalization, Other)
  Sender: FDA-Public Use
  Company Number: DE-PFIZER INC-2007055315

PATIENT
  Sex: Female
  Weight: 35 kg

DRUGS (2)
  1. REVATIO [Suspect]
     Indication: PULMONARY HYPERTENSION
     Dosage: DAILY DOSE:30MG
     Route: 048
     Dates: start: 20061001, end: 20061103
  2. BOSENTAN [Concomitant]
     Dosage: DAILY DOSE:250MG
     Route: 048

REACTIONS (3)
  - CARDIAC FAILURE [None]
  - DIARRHOEA [None]
  - PANCREATIC CARCINOMA METASTATIC [None]
